FAERS Safety Report 10205687 (Version 1)
Quarter: 2014Q2

REPORT INFORMATION
  Report Type: Spontaneous
  Country: US (occurrence: US)
  Receive Date: 20140530
  Receipt Date: 20140530
  Transmission Date: 20141212
  Serious: No
  Sender: FDA-Public Use
  Company Number: US-B.I. PHARMACEUTICALS,INC./RIDGEFIELD-2014-BI-22247BP

PATIENT
  Age: 61 Year
  Sex: Female
  Weight: 77 kg

DRUGS (6)
  1. SPIRIVA [Suspect]
     Indication: BRONCHITIS CHRONIC
     Dosage: 18 MCG
     Route: 055
     Dates: start: 201402
  2. SERTRALINE [Concomitant]
     Indication: DEPRESSION
     Dosage: 200 MG
     Route: 048
     Dates: start: 2012
  3. ABILIFY [Concomitant]
     Indication: DEPRESSION
     Dosage: 10 MG
     Route: 048
  4. REMERON [Concomitant]
     Indication: DEPRESSION
     Route: 048
     Dates: start: 201309
  5. DETROL [Concomitant]
     Indication: INCONTINENCE
     Route: 048
     Dates: start: 201309
  6. KLONOPIN [Concomitant]
     Indication: ANXIETY
     Route: 048
     Dates: start: 201305

REACTIONS (2)
  - Cough [Not Recovered/Not Resolved]
  - Sputum discoloured [Not Recovered/Not Resolved]
